FAERS Safety Report 7211248-5 (Version None)
Quarter: 2011Q1

REPORT INFORMATION
  Report Type: 
  Country: None (occurrence: None)
  Receive Date: 20110105
  Receipt Date: 20110103
  Transmission Date: 20110831
  Serious: Yes (Other)
  Sender: FDA-Public Use
  Company Number: US-JNJFOC-20090806105

PATIENT

DRUGS (1)
  1. LEVAQUIN [Suspect]
     Indication: ILL-DEFINED DISORDER
     Route: 065

REACTIONS (8)
  - FATIGUE [None]
  - NECK PAIN [None]
  - MUSCULOSKELETAL PAIN [None]
  - ARTHRALGIA [None]
  - PAIN IN EXTREMITY [None]
  - HYPOKINESIA [None]
  - NODULE [None]
  - TENDONITIS [None]
